FAERS Safety Report 7743176-0 (Version None)
Quarter: 2011Q3

REPORT INFORMATION
  Report Type: 
  Country: None (occurrence: None)
  Receive Date: 20110912
  Receipt Date: 20110831
  Transmission Date: 20111222
  Serious: Yes (Other)
  Sender: FDA-Public Use
  Company Number: US-BAYER-2011-016868

PATIENT
  Age: 31 Year
  Sex: Female
  Weight: 79.365 kg

DRUGS (9)
  1. DROSPIRENONE AND ETHINYL ESTRADIOL [Suspect]
     Indication: ACNE
     Dosage: UNK
     Dates: start: 20040101, end: 20110101
  2. DROSPIRENONE AND ETHINYL ESTRADIOL [Suspect]
     Indication: CONTRACEPTION
  3. AMITIZA [Concomitant]
     Dosage: 8 UNK, UNK
     Dates: start: 20100401
  4. YASMIN [Suspect]
     Indication: CONTRACEPTION
  5. LEVOTHYROXINE SODIUM [Concomitant]
     Dosage: 0.05 MG, UNK
     Dates: start: 20100424
  6. FLUTICASONE PROP [Concomitant]
     Dosage: UNK
     Dates: start: 20100401
  7. FLUCONAZOLE [Concomitant]
     Dosage: 150 MG, UNK
     Dates: start: 20100401
  8. YASMIN [Suspect]
     Indication: ACNE
     Dosage: UNK
     Route: 048
     Dates: start: 20040101, end: 20110101
  9. AMOXICILLIN [Concomitant]
     Dosage: 500 MG, UNK
     Dates: start: 20100401

REACTIONS (9)
  - PAIN [None]
  - PULMONARY EMBOLISM [None]
  - MYOCARDIAL INFARCTION [None]
  - BILIARY COLIC [None]
  - INJURY [None]
  - DEEP VEIN THROMBOSIS [None]
  - CHOLECYSTITIS CHRONIC [None]
  - GALLBLADDER DISORDER [None]
  - CEREBROVASCULAR ACCIDENT [None]
